FAERS Safety Report 26161942 (Version 1)
Quarter: 2025Q4

REPORT INFORMATION
  Report Type: Spontaneous
  Country: US (occurrence: US)
  Receive Date: 20251216
  Receipt Date: 20251216
  Transmission Date: 20260118
  Serious: No
  Sender: MERCK SHARP & DOHME LLC
  Company Number: US-009507513-2354632

PATIENT
  Sex: Male

DRUGS (9)
  1. SOTATERCEPT [Suspect]
     Active Substance: SOTATERCEPT
  2. SOTATERCEPT [Suspect]
     Active Substance: SOTATERCEPT
  3. SOTATERCEPT [Suspect]
     Active Substance: SOTATERCEPT
  4. SOTATERCEPT [Suspect]
     Active Substance: SOTATERCEPT
  5. ADCIRCA [Suspect]
     Active Substance: TADALAFIL
     Indication: Pulmonary arterial hypertension
     Route: 048
     Dates: start: 202104
  6. OPSUMIT [Concomitant]
     Active Substance: MACITENTAN
  7. MACITENTAN\TADALAFIL [Concomitant]
     Active Substance: MACITENTAN\TADALAFIL
  8. UPTRAVI [Concomitant]
     Active Substance: SELEXIPAG
  9. EGRIFTA SV SDV [Concomitant]

REACTIONS (3)
  - Drug eruption [Unknown]
  - Headache [Unknown]
  - Diarrhoea [Unknown]
